FAERS Safety Report 22066749 (Version 6)
Quarter: 2025Q4

REPORT INFORMATION
  Report Type: Report from Study
  Country: US (occurrence: US)
  Receive Date: 20230306
  Receipt Date: 20251006
  Transmission Date: 20260118
  Serious: Yes (Death)
  Sender: JOHNSON AND JOHNSON
  Company Number: US-JNJFOC-20230305823

PATIENT
  Age: 75 Year
  Sex: Female

DRUGS (1)
  1. CILTACABTAGENE AUTOLEUCEL [Suspect]
     Active Substance: CILTACABTAGENE AUTOLEUCEL
     Indication: Plasma cell myeloma
     Dosage: 3.14 X 10^7 CAR POSITIVE T CELLS, FREQUENCY:ONCE
     Route: 042
     Dates: start: 2022

REACTIONS (1)
  - Immune effector cell-associated neurotoxicity syndrome [Fatal]
